FAERS Safety Report 5008281-0 (Version None)
Quarter: 2006Q1

REPORT INFORMATION
  Report Type: 
  Country: None (occurrence: None)
  Receive Date: 20060331
  Receipt Date: 20050221
  Transmission Date: 20060701
  Serious: Yes (Hospitalization, Other)
  Sender: FDA-Public Use
  Company Number: WAES 0502USA02573

PATIENT
  Age: 49 Year
  Sex: Male

DRUGS (2)
  1. CANCIDAS [Suspect]
     Indication: CANDIDIASIS
     Dates: start: 20050214
  2. CANCIDAS [Suspect]
     Indication: FUNGAL INFECTION
     Dates: start: 20050214

REACTIONS (1)
  - LIVER FUNCTION TEST ABNORMAL [None]
